FAERS Safety Report 18355924 (Version 1)
Quarter: 2020Q4

REPORT INFORMATION
  Report Type: Spontaneous
  Country: GB (occurrence: GB)
  Receive Date: 20201007
  Receipt Date: 20201007
  Transmission Date: 20210114
  Serious: Yes (Hospitalization, Other)
  Sender: FDA-Public Use
  Company Number: GB-SA-2020SA270222

PATIENT

DRUGS (12)
  1. ALLOPURINOL. [Concomitant]
     Active Substance: ALLOPURINOL
  2. ATORVASTATIN [Concomitant]
     Active Substance: ATORVASTATIN
  3. NOVOMIX [Concomitant]
     Active Substance: INSULIN ASPART
  4. DIGOXIN. [Concomitant]
     Active Substance: DIGOXIN
  5. ESOMEPRAZOLE SODIUM. [Concomitant]
     Active Substance: ESOMEPRAZOLE SODIUM
  6. APIXABAN [Concomitant]
     Active Substance: APIXABAN
     Dosage: UNK
  7. FOLIC ACID. [Concomitant]
     Active Substance: FOLIC ACID
  8. BISOPROLOL [Concomitant]
     Active Substance: BISOPROLOL
  9. CLOPIDOGREL BISULFATE. [Suspect]
     Active Substance: CLOPIDOGREL BISULFATE
     Indication: ACUTE MYOCARDIAL INFARCTION
     Dosage: EACH MORNING
     Route: 048
     Dates: start: 20200904, end: 20200909
  10. CANDESARTAN. [Concomitant]
     Active Substance: CANDESARTAN
  11. FUROSEMIDE. [Concomitant]
     Active Substance: FUROSEMIDE
  12. ACETYLSALICYLIC ACID [Concomitant]
     Active Substance: ASPIRIN

REACTIONS (6)
  - Dyspnoea [Unknown]
  - Lethargy [Unknown]
  - Neutropenia [Recovered/Resolved]
  - Abnormal loss of weight [Unknown]
  - Cough [Unknown]
  - Chest pain [Unknown]

NARRATIVE: CASE EVENT DATE: 20200904
